FAERS Safety Report 5057506-4 (Version None)
Quarter: 2006Q3

REPORT INFORMATION
  Report Type: 
  Country: None (occurrence: None)
  Receive Date: 20060721
  Receipt Date: 20051031
  Transmission Date: 20061208
  Serious: No
  Sender: FDA-Public Use
  Company Number: US-GLAXOSMITHKLINE-A0580326A

PATIENT
  Age: 79 Year
  Sex: Female

DRUGS (2)
  1. AVANDIA [Suspect]
     Route: 048
  2. GLUCOVANCE [Concomitant]

REACTIONS (1)
  - FLUID RETENTION [None]
